FAERS Safety Report 4733602-3 (Version None)
Quarter: 2005Q3

REPORT INFORMATION
  Report Type: 
  Country: None (occurrence: None)
  Receive Date: 20050729
  Receipt Date: 20050622
  Transmission Date: 20060218
  Serious: Yes (Other)
  Sender: FDA-Public Use
  Company Number: COT_0104_2005

PATIENT
  Age: 37 Year
  Sex: Male

DRUGS (16)
  1. VENTAVIS [Suspect]
     Indication: PULMONARY HYPERTENSION
     Dosage: 2.5 MCG ONCE IH
     Route: 055
     Dates: start: 20050621, end: 20050621
  2. VENTAVIS [Suspect]
     Indication: PULMONARY HYPERTENSION
     Dosage: 5 MCG Q3HR IH
     Route: 055
     Dates: start: 20050621
  3. VENTAVIS [Suspect]
     Indication: PULMONARY HYPERTENSION
     Dosage: 2.5 MCG IH
     Route: 055
  4. VALPROATE [Concomitant]
  5. LEXAPRO [Concomitant]
  6. NEURONTIN [Concomitant]
  7. MULTI-VITAMINS [Concomitant]
  8. MAG-OX [Concomitant]
  9. PROTONIX [Concomitant]
  10. ARAVA [Concomitant]
  11. FOLIC ACID [Concomitant]
  12. PANCREASE [Concomitant]
  13. MUCOMYST [Concomitant]
  14. OXYGEN [Concomitant]
  15. PROGRAF [Concomitant]
  16. PREDNISONE [Concomitant]

REACTIONS (2)
  - DYSPNOEA [None]
  - SWELLING FACE [None]
